FAERS Safety Report 8296665-7 (Version None)
Quarter: 2012Q2

REPORT INFORMATION
  Report Type: 
  Country: None (occurrence: None)
  Receive Date: 20120418
  Receipt Date: 20120418
  Transmission Date: 20120825
  Serious: Yes (Other)
  Sender: FDA-Public Use
  Company Number: None

PATIENT
  Age: 28 Year
  Sex: Female
  Weight: 63.502 kg

DRUGS (2)
  1. ORTHO-NOVUM [Concomitant]
     Route: 048
  2. DRIXORAL [Suspect]
     Indication: SINUS HEADACHE
     Dosage: 1 ROUND GREEN PILL
     Route: 048

REACTIONS (3)
  - IRRITABILITY [None]
  - ANGER [None]
  - AGGRESSION [None]
